FAERS Safety Report 20843242 (Version 1)
Quarter: 2022Q2

REPORT INFORMATION
  Report Type: Spontaneous
  Country: US (occurrence: US)
  Receive Date: 20220518
  Receipt Date: 20220518
  Transmission Date: 20220721
  Serious: Yes (Life-Threatening, Hospitalization)
  Sender: FDA-Public Use
  Company Number: US-MYLANLABS-2022M1036413

PATIENT
  Age: 26 Year
  Sex: Male

DRUGS (2)
  1. FLUDARABINE [Suspect]
     Active Substance: FLUDARABINE PHOSPHATE
     Indication: B precursor type acute leukaemia
     Dosage: 25 MILLIGRAM/SQ. METER, INFUSION
  2. CYCLOPHOSPHAMIDE [Suspect]
     Active Substance: CYCLOPHOSPHAMIDE
     Indication: B precursor type acute leukaemia
     Dosage: 900 MILLIGRAM/SQ. METER, Q8H

REACTIONS (8)
  - Cytokine release syndrome [Unknown]
  - Haemophagocytic lymphohistiocytosis [Unknown]
  - Bacterial infection [Unknown]
  - Hypoxia [Unknown]
  - Haemoptysis [Unknown]
  - Atypical haemolytic uraemic syndrome [Unknown]
  - Staphylococcal infection [Unknown]
  - Cholecystitis [Unknown]
